FAERS Safety Report 17458230 (Version 1)
Quarter: 2020Q1

REPORT INFORMATION
  Report Type: Spontaneous
  Country: FR (occurrence: FR)
  Receive Date: 20200225
  Receipt Date: 20200225
  Transmission Date: 20200409
  Serious: Yes (Other)
  Sender: FDA-Public Use
  Company Number: FR-MYLANLABS-2020M1019755

PATIENT
  Age: 74 Year
  Sex: Male

DRUGS (7)
  1. CEFAZOLINE MYLAN [Suspect]
     Active Substance: CEFAZOLIN SODIUM
     Indication: ANTIBIOTIC PROPHYLAXIS
     Dosage: NON RENSEIGN?E
     Route: 042
     Dates: start: 20181126, end: 20181126
  2. PROPOFOL LIPURO [Suspect]
     Active Substance: PROPOFOL
     Indication: INDUCTION OF ANAESTHESIA
     Dosage: NON RENSEIGN?E
     Route: 042
     Dates: start: 20181126, end: 20181126
  3. KETAMINE RENAUDIN [Suspect]
     Active Substance: KETAMINE
     Indication: INDUCTION OF ANAESTHESIA
     Dosage: NON RENSEIGN?E
     Route: 042
     Dates: start: 20181126, end: 20181126
  4. ATRACURIUM HOSPIRA [Suspect]
     Active Substance: ATRACURIUM BESYLATE
     Indication: INDUCTION OF ANAESTHESIA
     Dosage: NON RENSEIGN?E
     Route: 042
     Dates: start: 20181126, end: 20181126
  5. SUFENTANIL MYLAN [Suspect]
     Active Substance: SUFENTANIL
     Indication: INDUCTION OF ANAESTHESIA
     Dosage: NON RENSEIGN?E
     Route: 042
     Dates: start: 20181126, end: 20181126
  6. MIDAZOLAM MYLAN [Suspect]
     Active Substance: MIDAZOLAM HYDROCHLORIDE
     Indication: INDUCTION OF ANAESTHESIA
     Dosage: NON RENSEIGN?E
     Route: 042
     Dates: start: 20181126, end: 20181126
  7. CELOCURINE                         /00057704/ [Suspect]
     Active Substance: SUCCINYLCHOLINE IODIDE
     Indication: INDUCTION OF ANAESTHESIA
     Dosage: NON RENSEIGN?E
     Route: 042
     Dates: start: 20181126, end: 20181126

REACTIONS (1)
  - Hypersensitivity [Recovered/Resolved]

NARRATIVE: CASE EVENT DATE: 20181126
